FAERS Safety Report 25244723 (Version 1)
Quarter: 2025Q2

REPORT INFORMATION
  Report Type: Spontaneous
  Country: US (occurrence: US)
  Receive Date: 20250428
  Receipt Date: 20250428
  Transmission Date: 20250717
  Serious: Yes (Other)
  Sender: IPCA
  Company Number: US-IPCA LABORATORIES LIMITED-IPC-2025-US-001117

PATIENT

DRUGS (1)
  1. ALENDRONATE SODIUM [Suspect]
     Active Substance: ALENDRONATE SODIUM
     Indication: Product used for unknown indication
     Route: 065
     Dates: start: 20250208

REACTIONS (8)
  - Soft tissue necrosis [Unknown]
  - Hypersensitivity [Unknown]
  - Swollen tongue [Unknown]
  - Abdominal pain upper [Unknown]
  - Tongue blistering [Unknown]
  - Pain [Unknown]
  - Bone loss [Unknown]
  - Condition aggravated [Unknown]

NARRATIVE: CASE EVENT DATE: 20250208
